FAERS Safety Report 7522211-9 (Version None)
Quarter: 2011Q2

REPORT INFORMATION
  Report Type: 
  Country: None (occurrence: None)
  Receive Date: 20110603
  Receipt Date: 20110308
  Transmission Date: 20111010
  Serious: No
  Sender: FDA-Public Use
  Company Number: US-BAYER-2011-022547

PATIENT
  Sex: Female
  Weight: 73 kg

DRUGS (2)
  1. CLARITIN [Concomitant]
     Dosage: UNK
  2. ALEVE-D SINUS + COLD [Suspect]
     Indication: NASOPHARYNGITIS
     Dosage: 1 DF, QD
     Route: 048

REACTIONS (1)
  - RHINORRHOEA [None]
